FAERS Safety Report 5715923-0 (Version None)
Quarter: 2008Q2

REPORT INFORMATION
  Report Type: 
  Country: None (occurrence: None)
  Receive Date: 20080424
  Receipt Date: 20080414
  Transmission Date: 20081010
  Serious: Yes (Hospitalization)
  Sender: FDA-Public Use
  Company Number: GB-ELI_LILLY_AND_COMPANY-GB200801000637

PATIENT
  Sex: Female

DRUGS (5)
  1. ZYPREXA [Suspect]
     Indication: MAJOR DEPRESSION
     Dosage: 5 MG, DAILY (1/D)
     Route: 048
     Dates: start: 20071012, end: 20071014
  2. ZYPREXA [Suspect]
     Dosage: 10 MG, DAILY (1/D)
     Route: 048
     Dates: start: 20071015, end: 20071101
  3. ZYPREXA [Suspect]
     Dosage: 5 MG, DAILY (1/D)
     Route: 048
     Dates: start: 20071101, end: 20071206
  4. MIRTAZAPINE [Concomitant]
     Indication: DEPRESSION
     Dosage: 15 MG, UNK
     Route: 048
     Dates: start: 20071012, end: 20071018
  5. MIRTAZAPINE [Concomitant]
     Dosage: 30 MG, UNK
     Route: 048
     Dates: start: 20071019, end: 20071211

REACTIONS (2)
  - NEPHROTIC SYNDROME [None]
  - OEDEMA [None]
